FAERS Safety Report 4616441-3 (Version None)
Quarter: 2005Q1

REPORT INFORMATION
  Report Type: 
  Country: None (occurrence: None)
  Receive Date: 20050318
  Receipt Date: 20050228
  Transmission Date: 20050727
  Serious: Yes (Life-Threatening, Hospitalization)
  Sender: FDA-Public Use
  Company Number: ATO-05-0042

PATIENT
  Age: 66 Year
  Sex: Female

DRUGS (2)
  1. TRISENOX [Suspect]
     Indication: MYELODYSPLASTIC SYNDROME
     Dosage: IVI
     Dates: start: 20050126, end: 20050225
  2. CYTARABINE [Suspect]
     Indication: MYELODYSPLASTIC SYNDROME
     Dosage: IVI
     Dates: start: 20050126

REACTIONS (5)
  - ASTHENIA [None]
  - CARDIAC ARREST [None]
  - FLUID OVERLOAD [None]
  - RENAL IMPAIRMENT [None]
  - RESPIRATORY DISTRESS [None]
